FAERS Safety Report 10618731 (Version 3)
Quarter: 2015Q1

REPORT INFORMATION
  Report Type: Report from Study
  Country: AU (occurrence: None)
  Receive Date: 20141125
  Receipt Date: 20150205
  Transmission Date: 20150720
  Serious: Yes (Other)
  Sender: FDA-Public Use
  Company Number: 2014-20725

PATIENT
  Age: 81 Year
  Sex: Female

DRUGS (2)
  1. EYLEA [Suspect]
     Active Substance: AFLIBERCEPT
     Indication: AGE-RELATED MACULAR DEGENERATION
     Dosage: 2 MG, LOADING DOSE, INTRAOCULAR
     Route: 031
     Dates: start: 20141105, end: 20141105
  2. CHLORHEXIDINE (CHLORHEXIDINE) [Suspect]
     Active Substance: CHLORHEXIDINE
     Indication: PRODUCT USED FOR UNKNOWN INDICATION

REACTIONS (6)
  - Discomfort [None]
  - Injection site pain [None]
  - Punctate keratitis [None]
  - Photophobia [None]
  - Blindness [None]
  - Corneal deposits [None]

NARRATIVE: CASE EVENT DATE: 20141105
